FAERS Safety Report 6336686-4 (Version None)
Quarter: 2009Q3

REPORT INFORMATION
  Report Type: 
  Country: None (occurrence: None)
  Receive Date: 20090901
  Receipt Date: 20090825
  Transmission Date: 20100115
  Serious: Yes (Other)
  Sender: FDA-Public Use
  Company Number: US-MERCK-0906USA01433

PATIENT
  Age: 73 Year
  Sex: Male

DRUGS (2)
  1. PROSCAR [Suspect]
     Indication: BENIGN PROSTATIC HYPERPLASIA
     Route: 048
     Dates: start: 20070305, end: 20080901
  2. UROXATRAL [Concomitant]
     Route: 065

REACTIONS (2)
  - GYNAECOMASTIA [None]
  - PROSTATE CANCER [None]
